FAERS Safety Report 14624057 (Version 1)
Quarter: 2018Q1

REPORT INFORMATION
  Report Type: Report from Study
  Country: FR (occurrence: FR)
  Receive Date: 20180312
  Receipt Date: 20180312
  Transmission Date: 20180509
  Serious: Yes (Hospitalization, Other)
  Sender: FDA-Public Use
  Company Number: FR-ROCHE-1982606

PATIENT
  Age: 14 Year
  Sex: Male

DRUGS (15)
  1. ETOPOSIDE. [Suspect]
     Active Substance: ETOPOSIDE
     Route: 042
     Dates: start: 20170828, end: 20170830
  2. HYDROCORTISONE. [Suspect]
     Active Substance: HYDROCORTISONE
     Route: 065
     Dates: start: 20170415, end: 20170419
  3. ETOPOSIDE. [Suspect]
     Active Substance: ETOPOSIDE
     Indication: BURKITT^S LYMPHOMA
     Dosage: FOR A CUMULATIVE DOSE BEFORE EVENT ONSET OF 2520 MG,
     Route: 042
     Dates: start: 20170702, end: 20170705
  4. BACTRIM [Concomitant]
     Active Substance: SULFAMETHOXAZOLE\TRIMETHOPRIM
     Route: 065
     Dates: start: 20170901
  5. FUNGIZONE [Concomitant]
     Active Substance: AMPHOTERICIN B
     Route: 065
     Dates: start: 20170901
  6. CYTARABIN [Suspect]
     Active Substance: CYTARABINE
     Route: 042
     Dates: start: 20170828, end: 20170901
  7. HYDROCORTISONE. [Suspect]
     Active Substance: HYDROCORTISONE
     Indication: BURKITT^S LYMPHOMA
     Dosage: FOR A CUMULATIVE DOSE BEFORE EVENT ONSET OF 150 MG
     Route: 065
     Dates: start: 20170701, end: 20170701
  8. RITUXIMAB. [Suspect]
     Active Substance: RITUXIMAB
     Route: 042
     Dates: start: 20170415, end: 20170419
  9. RITUXIMAB. [Suspect]
     Active Substance: RITUXIMAB
     Indication: BURKITT^S LYMPHOMA
     Dosage: FOR A CUMULATIVE DOSE BEFORE EVENT ONSET OF 3620 MG,
     Route: 042
     Dates: start: 20170701, end: 20170701
  10. CYTARABIN [Suspect]
     Active Substance: CYTARABINE
     Indication: BURKITT^S LYMPHOMA
     Dosage: FOR A CUMULATIVE DOSE BEFORE EVENT ONSET OF 14100 MG
     Route: 042
     Dates: start: 20170701, end: 20170705
  11. CYTARABIN [Suspect]
     Active Substance: CYTARABINE
     Route: 042
     Dates: start: 20170415, end: 20170419
  12. ETOPOSIDE. [Suspect]
     Active Substance: ETOPOSIDE
     Route: 042
     Dates: start: 20170415, end: 20170419
  13. METHOTREXATE. [Suspect]
     Active Substance: METHOTREXATE
     Route: 065
     Dates: start: 20170415, end: 20170419
  14. METHOTREXATE. [Suspect]
     Active Substance: METHOTREXATE
     Indication: BURKITT^S LYMPHOMA
     Dosage: FOR A CUMULATIVE DOSE BEFORE EVENT ONSET OF 165 MG
     Route: 065
     Dates: start: 20170701, end: 20170701
  15. ACICLOVIR [Concomitant]
     Active Substance: ACYCLOVIR
     Route: 065
     Dates: start: 20170901, end: 20171026

REACTIONS (5)
  - Febrile neutropenia [Recovered/Resolved]
  - Mucosal inflammation [Recovered/Resolved]
  - Rectal haemorrhage [Recovered/Resolved]
  - Neutrophil count decreased [Not Recovered/Not Resolved]
  - Escherichia sepsis [Recovered/Resolved]

NARRATIVE: CASE EVENT DATE: 20170426
